FAERS Safety Report 6572024-X (Version None)
Quarter: 2010Q1

REPORT INFORMATION
  Report Type: 
  Country: None (occurrence: None)
  Receive Date: 20100205
  Receipt Date: 20100203
  Transmission Date: 20100710
  Serious: Yes (Life-Threatening, Hospitalization)
  Sender: FDA-Public Use
  Company Number: DK-PFIZER INC-2010014088

PATIENT
  Age: 57 Year
  Sex: Male
  Weight: 90 kg

DRUGS (1)
  1. SALAZOPYRIN [Suspect]
     Indication: PALINDROMIC RHEUMATISM
     Dosage: 500 MG, 2X/DAY
     Route: 048
     Dates: start: 20091118, end: 20100105

REACTIONS (3)
  - AGRANULOCYTOSIS [None]
  - C-REACTIVE PROTEIN INCREASED [None]
  - PYREXIA [None]
